FAERS Safety Report 8010398-3 (Version None)
Quarter: 2011Q4

REPORT INFORMATION
  Report Type: 
  Country: None (occurrence: None)
  Receive Date: 20111222
  Receipt Date: 20111216
  Transmission Date: 20120403
  Serious: Yes (Other)
  Sender: FDA-Public Use
  Company Number: AUR-APL-2011-06173

PATIENT
  Age: 84 Year
  Sex: Female
  Weight: 56.6996 kg

DRUGS (1)
  1. ALENDRONIC ACID (ALENDRONIC ACID) [Suspect]
     Indication: OSTEOPOROSIS
     Dosage: (70 MG, EVERY THURSDAY), ORAL
     Route: 048

REACTIONS (2)
  - ABASIA [None]
  - ARTHRALGIA [None]
